FAERS Safety Report 7521979-5 (Version None)
Quarter: 2011Q2

REPORT INFORMATION
  Report Type: 
  Country: None (occurrence: None)
  Receive Date: 20110603
  Receipt Date: 20110525
  Transmission Date: 20111010
  Serious: Yes (Death, Life-Threatening, Hospitalization)
  Sender: FDA-Public Use
  Company Number: IL-NOVOPROD-328885

PATIENT
  Age: 40 Year
  Sex: Male

DRUGS (1)
  1. NOVOSEVEN [Suspect]
     Indication: INTESTINAL HAEMORRHAGE
     Dosage: 9 MG, QD
     Dates: start: 20110522, end: 20110522

REACTIONS (1)
  - SEPSIS [None]
